FAERS Safety Report 6148670-4 (Version None)
Quarter: 2009Q2

REPORT INFORMATION
  Report Type: 
  Country: None (occurrence: None)
  Receive Date: 20090406
  Receipt Date: 20090406
  Transmission Date: 20091009
  Serious: Yes (Life-Threatening)
  Sender: FDA-Public Use
  Company Number: None

PATIENT
  Age: 10 Year
  Sex: Male
  Weight: 50 kg

DRUGS (1)
  1. STRATTERA [Suspect]
     Indication: ATTENTION DEFICIT/HYPERACTIVITY DISORDER
     Dosage: 60 MG 1X1 DAILY FOR 6 DAY PO
     Route: 048

REACTIONS (7)
  - ACUTE HEPATIC FAILURE [None]
  - COAGULOPATHY [None]
  - ENCEPHALOPATHY [None]
  - HEPATIC NECROSIS [None]
  - HYPERBILIRUBINAEMIA [None]
  - IDIOSYNCRATIC DRUG REACTION [None]
  - LIVER TRANSPLANT [None]
